FAERS Safety Report 6252342-5 (Version None)
Quarter: 2009Q3

REPORT INFORMATION
  Report Type: 
  Country: None (occurrence: None)
  Receive Date: 20090701
  Receipt Date: 20090619
  Transmission Date: 20100115
  Serious: Yes (Hospitalization)
  Sender: FDA-Public Use
  Company Number: DE-RANBAXY-2009RR-22365

PATIENT
  Age: 86 Year
  Sex: Male
  Weight: 60 kg

DRUGS (10)
  1. METOPROLOL SUCCINATE [Suspect]
     Indication: ATRIAL FIBRILLATION
     Dosage: 50 MG, QD
     Route: 048
     Dates: start: 20070101, end: 20080904
  2. DIGITOXIN TAB [Suspect]
     Indication: ATRIAL FIBRILLATION
     Dosage: 0.07 MG, QD
     Route: 048
     Dates: start: 20070101, end: 20080904
  3. RIVASTIGMINE TARTRATE [Suspect]
     Indication: DEMENTIA
     Dosage: 9.5 MG, QD
     Route: 003
     Dates: start: 20070101, end: 20080904
  4. ASPIRIN [Concomitant]
     Indication: PROPHYLAXIS
     Dosage: 100 MG, QD
     Route: 048
     Dates: start: 20070101, end: 20080910
  5. HCT 1A PHARMA [Concomitant]
     Indication: HYPERTENSION
     Dosage: 6.25 MG, QD
     Route: 048
     Dates: start: 20070101, end: 20080910
  6. PIPAMPERONE [Concomitant]
     Indication: SLEEP DISORDER
     Dosage: 40 MG, QD
     Route: 048
     Dates: start: 20070101, end: 20080910
  7. RAMIPRIL [Concomitant]
     Indication: HYPERTENSION
     Dosage: 2.5 MG, QD
     Route: 048
     Dates: start: 20070101, end: 20080910
  8. ZOPIDORM [Concomitant]
     Indication: SLEEP DISORDER
     Dosage: 7.5 MG, QD
     Route: 048
     Dates: start: 20070101, end: 20080910
  9. POTASSIUM CHLORIDE [Concomitant]
     Dosage: UNK
     Dates: start: 20080904, end: 20080910
  10. CHOLESTYRAMINE [Concomitant]
     Dosage: UNK
     Dates: start: 20080904, end: 20080908

REACTIONS (1)
  - BRADYARRHYTHMIA [None]
